FAERS Safety Report 11088440 (Version 3)
Quarter: 2016Q1

REPORT INFORMATION
  Report Type: Spontaneous
  Country: US (occurrence: US)
  Receive Date: 20150504
  Receipt Date: 20160122
  Transmission Date: 20160525
  Serious: Yes (Other)
  Sender: FDA-Public Use
  Company Number: US-TEVA-560014USA

PATIENT
  Age: 63 Year
  Sex: Female

DRUGS (3)
  1. ESTRADERM [Concomitant]
     Active Substance: ESTRADIOL
  2. LISINOPRIL. [Concomitant]
     Active Substance: LISINOPRIL
  3. COPAXONE [Suspect]
     Active Substance: GLATIRAMER ACETATE
     Indication: MULTIPLE SCLEROSIS
     Route: 058
     Dates: start: 20140814

REACTIONS (7)
  - Dyspnoea [Unknown]
  - Cough [Unknown]
  - Throat irritation [Unknown]
  - Infection [Not Recovered/Not Resolved]
  - Respiratory tract infection [Not Recovered/Not Resolved]
  - Dysphonia [Unknown]
  - Pyrexia [Unknown]

NARRATIVE: CASE EVENT DATE: 2014
